FAERS Safety Report 23098213 (Version 2)
Quarter: 2023Q4

REPORT INFORMATION
  Report Type: Spontaneous
  Country: GR (occurrence: GR)
  Receive Date: 20231023
  Receipt Date: 20231027
  Transmission Date: 20240110
  Serious: Yes (Hospitalization, Other)
  Sender: FDA-Public Use
  Company Number: GR-ABBVIE-5461787

PATIENT
  Age: 58 Year
  Sex: Female

DRUGS (4)
  1. NITROGLYCERIN [Suspect]
     Active Substance: NITROGLYCERIN
     Indication: Anal fissure
     Dosage: RECTOGESIC (GLYCERYL TRINITRATE) RECTAL OINTMENT, 4 MG/G, IN THE MORNING AND IN THE EVENING,  TOP...
     Route: 061
     Dates: start: 20230724, end: 20230724
  2. AMLODIPINE BESYLATE\VALSARTAN [Concomitant]
     Active Substance: AMLODIPINE BESYLATE\VALSARTAN
     Indication: Hypertension
  3. XANAX [Concomitant]
     Active Substance: ALPRAZOLAM
     Indication: Anxiety
  4. BROMAZEPAM [Concomitant]
     Active Substance: BROMAZEPAM
     Indication: Anxiety

REACTIONS (6)
  - Anaphylactic shock [Recovered/Resolved]
  - Application site pain [Unknown]
  - Pyrexia [Unknown]
  - Lymphadenopathy [Not Recovered/Not Resolved]
  - Abdominal pain upper [Not Recovered/Not Resolved]
  - Eye haemorrhage [Not Recovered/Not Resolved]

NARRATIVE: CASE EVENT DATE: 20230101
